FAERS Safety Report 9633983 (Version 1)
Quarter: 2013Q4

REPORT INFORMATION
  Report Type: Spontaneous
  Country: TH (occurrence: TH)
  Receive Date: 20131021
  Receipt Date: 20131021
  Transmission Date: 20140711
  Serious: Yes (Other)
  Sender: FDA-Public Use
  Company Number: TH-ASTRAZENECA-2012SE80600

PATIENT
  Sex: Female

DRUGS (1)
  1. ESOMEPRAZOLE [Suspect]
     Route: 042
     Dates: start: 20110422, end: 20110518

REACTIONS (1)
  - Acute generalised exanthematous pustulosis [Recovered/Resolved]
